FAERS Safety Report 21247388 (Version 2)
Quarter: 2022Q3

REPORT INFORMATION
  Report Type: Spontaneous
  Country: CA (occurrence: CA)
  Receive Date: 20220824
  Receipt Date: 20220919
  Transmission Date: 20221026
  Serious: Yes (Hospitalization, Other)
  Sender: FDA-Public Use
  Company Number: CA-BRISTOL-MYERS SQUIBB COMPANY-2022-088855

PATIENT
  Age: 71 Year
  Sex: Female

DRUGS (87)
  1. KENALOG [Suspect]
     Active Substance: TRIAMCINOLONE ACETONIDE
     Indication: Product used for unknown indication
     Route: 014
  2. ACETAMINOPHEN\PROPOXYPHENE HYDROCHLORIDE [Concomitant]
     Active Substance: ACETAMINOPHEN\PROPOXYPHENE HYDROCHLORIDE
     Indication: Product used for unknown indication
     Route: 065
  3. ACETAMINOPHEN [Concomitant]
     Active Substance: ACETAMINOPHEN
     Indication: Product used for unknown indication
     Route: 065
  4. ACETAMINOPHEN [Concomitant]
     Active Substance: ACETAMINOPHEN
     Indication: Product used for unknown indication
     Route: 065
  5. ALPRAZOLAM [Concomitant]
     Active Substance: ALPRAZOLAM
     Indication: Product used for unknown indication
     Route: 065
  6. AMOXICILLIN TRIHYDRATE [Concomitant]
     Active Substance: AMOXICILLIN
     Indication: Product used for unknown indication
     Route: 065
  7. HYDROCHLOROTHIAZIDE [Concomitant]
     Active Substance: HYDROCHLOROTHIAZIDE
     Indication: Product used for unknown indication
     Route: 005
  8. ATORVASTATIN CALCIUM [Concomitant]
     Active Substance: ATORVASTATIN CALCIUM
     Indication: Product used for unknown indication
     Route: 065
  9. FLUTICASONE FUROATE [Concomitant]
     Active Substance: FLUTICASONE FUROATE
     Indication: Product used for unknown indication
     Dosage: SPRAY, METEREDDOSE
     Route: 065
  10. AZITHROMYCIN [Concomitant]
     Active Substance: AZITHROMYCIN
     Indication: Product used for unknown indication
     Dosage: SPRAY, METEREDDOSE
     Route: 065
  11. BACTRIM [Concomitant]
     Active Substance: SULFAMETHOXAZOLE\TRIMETHOPRIM
     Indication: Product used for unknown indication
     Dosage: INTRA NASAL SPRAY, METEREDDOSE
     Route: 065
  12. BENADRYL [Concomitant]
     Active Substance: DIPHENHYDRAMINE HYDROCHLORIDE
     Indication: Product used for unknown indication
     Dosage: SPRAY, METEREDDOSE, PREMEDICATION
     Route: 048
  13. BETADERM [Concomitant]
     Active Substance: BETAMETHASONE VALERATE
     Indication: Product used for unknown indication
     Dosage: SPRAY, METEREDDOSE
     Route: 065
  14. BETADERM [Concomitant]
     Active Substance: BETAMETHASONE VALERATE
     Indication: Product used for unknown indication
     Dosage: SPRAY, METEREDDOSE
     Route: 065
  15. BETAMETHASONE VALERATE [Concomitant]
     Active Substance: BETAMETHASONE VALERATE
     Indication: Product used for unknown indication
     Dosage: SPRAY, METEREDDOSE
     Route: 065
  16. BETAMETHASONE\MUPIROCIN [Concomitant]
     Active Substance: BETAMETHASONE\MUPIROCIN
     Indication: Product used for unknown indication
     Dosage: SPRAY, METEREDDOSE
     Route: 065
  17. BIAXIN [Concomitant]
     Active Substance: CLARITHROMYCIN
     Indication: Product used for unknown indication
     Dosage: SPRAY, METEREDDOSE
     Route: 065
  18. CALCIUM CARBONATE [Concomitant]
     Active Substance: CALCIUM CARBONATE
     Indication: Product used for unknown indication
     Dosage: SPRAY, METEREDDOSE
     Route: 065
  19. CETIRIZINE [Concomitant]
     Active Substance: CETIRIZINE HYDROCHLORIDE
     Indication: Hypersensitivity
     Dosage: SPRAY, METEREDDOSE
     Route: 065
  20. CETIRIZINE [Concomitant]
     Active Substance: CETIRIZINE HYDROCHLORIDE
     Indication: Prophylaxis
  21. CLARITHROMYCIN [Concomitant]
     Active Substance: CLARITHROMYCIN
     Indication: Product used for unknown indication
     Dosage: SPRAY, METEREDDOSE
     Route: 065
  22. CLOTRIMAZOLE [Concomitant]
     Active Substance: CLOTRIMAZOLE
     Indication: Product used for unknown indication
     Dosage: SPRAY, METEREDDOSE
     Route: 065
  23. CUPRIC OXIDE [Concomitant]
     Active Substance: CUPRIC OXIDE
     Indication: Product used for unknown indication
     Dosage: SPRAY, METEREDDOSE
     Route: 065
  24. DESONIDE [Concomitant]
     Active Substance: DESONIDE
     Indication: Product used for unknown indication
     Dosage: SPRAY, METEREDDOSE
     Route: 065
  25. DEXPANTHENOL [Concomitant]
     Active Substance: DEXPANTHENOL
     Indication: Product used for unknown indication
     Dosage: SPRAY, METEREDDOSE
     Route: 065
  26. DIFENOXIN HYDROCHLORIDE [Concomitant]
     Active Substance: DIFENOXIN HYDROCHLORIDE
     Indication: Product used for unknown indication
     Dosage: SPRAY, METEREDDOSE
     Route: 065
  27. DILAUDID [Concomitant]
     Active Substance: HYDROMORPHONE HYDROCHLORIDE
     Indication: Product used for unknown indication
     Dosage: SPRAY, METEREDDOSE
     Route: 065
  28. DIMETHYL SULFOXIDE [Concomitant]
     Active Substance: DIMETHYL SULFOXIDE
     Indication: Product used for unknown indication
     Dosage: SPRAY, METEREDDOSE
     Route: 065
  29. DIPHENHYDRAMINE HYDROCHLORIDE [Concomitant]
     Active Substance: DIPHENHYDRAMINE HYDROCHLORIDE
     Indication: Product used for unknown indication
     Dosage: SPRAY, METEREDDOSE
     Route: 065
  30. DULCOLAX (BISACODYL) [Concomitant]
     Active Substance: BISACODYL
     Indication: Product used for unknown indication
     Dosage: SPRAY, METEREDDOSE
     Route: 065
  31. ENTOCORT [Concomitant]
     Active Substance: BUDESONIDE
     Indication: Product used for unknown indication
     Dosage: ENTOCORT CAPSULE SUSTAIN RELEASED
     Route: 048
  32. ERTAPENEM SODIUM [Concomitant]
     Active Substance: ERTAPENEM SODIUM
     Indication: Product used for unknown indication
     Dosage: ENTOCORT CAPSULE SUSTAIN RELEASED
     Route: 065
  33. FLOVENT [Concomitant]
     Active Substance: FLUTICASONE PROPIONATE
     Indication: Product used for unknown indication
     Dosage: ENTOCORT CAPSULE SUSTAIN RELEASED
     Route: 065
  34. GLYCERIN [Concomitant]
     Active Substance: GLYCERIN
     Indication: Product used for unknown indication
     Dosage: ENTOCORT CAPSULE SUSTAIN RELEASED, LIQUID ORAL
     Route: 065
  35. GLYCERIN [Concomitant]
     Active Substance: GLYCERIN
     Indication: Product used for unknown indication
     Dosage: ENTOCORT CAPSULE SUSTAIN RELEASED??DROPS ORAL
     Route: 048
  36. NITROGLYCERIN [Concomitant]
     Active Substance: NITROGLYCERIN
     Indication: Product used for unknown indication
     Route: 048
  37. GRAMICIDIN [Concomitant]
     Active Substance: GRAMICIDIN
     Indication: Product used for unknown indication
     Route: 048
  38. HABITROL [Concomitant]
     Active Substance: NICOTINE
     Indication: Product used for unknown indication
     Route: 048
  39. HUMIRA [Concomitant]
     Active Substance: ADALIMUMAB
     Indication: Crohn^s disease
     Dosage: 2190 DAYS, SUBCUTANEOUS
     Route: 005
  40. HYDROMORPHONE HYDROCHLORIDE [Concomitant]
     Active Substance: HYDROMORPHONE HYDROCHLORIDE
     Indication: Product used for unknown indication
     Route: 005
  41. GRAMICIDIN\NEOMYCIN\POLYMYXIN B SULFATE [Concomitant]
     Active Substance: GRAMICIDIN\NEOMYCIN\POLYMYXIN B SULFATE
     Indication: Product used for unknown indication
     Route: 065
  42. INFLIXIMAB [Concomitant]
     Active Substance: INFLIXIMAB
     Indication: Product used for unknown indication
     Route: 042
  43. LOMOTIL [Concomitant]
     Active Substance: ATROPINE SULFATE\DIPHENOXYLATE HYDROCHLORIDE
     Indication: Product used for unknown indication
     Route: 005
  44. LOMOTIL [Concomitant]
     Active Substance: ATROPINE SULFATE\DIPHENOXYLATE HYDROCHLORIDE
  45. LOPERAMIDE [Concomitant]
     Active Substance: LOPERAMIDE
     Indication: Product used for unknown indication
     Route: 005
  46. LOPERAMIDE [Concomitant]
     Active Substance: LOPERAMIDE
     Dosage: CYCLICAL
     Route: 065
  47. POLYETHYLENE GLYCOLS [Concomitant]
     Active Substance: POLYETHYLENE GLYCOLS
     Indication: Product used for unknown indication
     Route: 066
  48. MAGNESIUM SULFATE [Concomitant]
     Active Substance: MAGNESIUM SULFATE
     Indication: Product used for unknown indication
     Route: 065
  49. METOCLOPRAMIDE HYDROCHLORIDE [Concomitant]
     Active Substance: METOCLOPRAMIDE HYDROCHLORIDE
     Indication: Product used for unknown indication
     Route: 048
  50. METOCLOPRAMIDE HYDROCHLORIDE [Concomitant]
     Active Substance: METOCLOPRAMIDE HYDROCHLORIDE
     Indication: Product used for unknown indication
     Route: 065
  51. METRONIDAZOLE [Concomitant]
     Active Substance: METRONIDAZOLE
     Indication: Product used for unknown indication
     Route: 065
  52. MORPHINE SULFATE [Concomitant]
     Active Substance: MORPHINE SULFATE
     Indication: Product used for unknown indication
     Route: 065
  53. MUPIROCIN [Concomitant]
     Active Substance: MUPIROCIN
     Indication: Product used for unknown indication
     Dosage: ROUTE: TROPICAL
     Route: 065
  54. NADOLOL [Concomitant]
     Active Substance: NADOLOL
     Indication: Product used for unknown indication
     Route: 065
  55. NEOMYCIN SULFATE [Concomitant]
     Active Substance: NEOMYCIN SULFATE
     Indication: Product used for unknown indication
     Route: 065
  56. NICODERM CQ [Concomitant]
     Active Substance: NICOTINE
     Indication: Product used for unknown indication
     Route: 065
  57. NICOMORPHINE [Concomitant]
     Active Substance: NICOMORPHINE
     Indication: Product used for unknown indication
     Route: 065
  58. NICOTINE POLACRILEX [Concomitant]
     Active Substance: NICOTINE
     Indication: Product used for unknown indication
     Route: 065
  59. NITROGLYCERIN [Concomitant]
     Active Substance: NITROGLYCERIN
     Indication: Product used for unknown indication
     Route: 048
  60. PANTOPRAZOLE [Concomitant]
     Active Substance: PANTOPRAZOLE
     Indication: Product used for unknown indication
     Route: 065
  61. PENTASA [Concomitant]
     Active Substance: MESALAMINE
     Indication: Product used for unknown indication
     Route: 065
  62. POLYMYXIN B SULFATE [Concomitant]
     Active Substance: POLYMYXIN B SULFATE
     Indication: Product used for unknown indication
     Route: 065
  63. POTASSIUM CHLORIDE [Concomitant]
     Active Substance: POTASSIUM CHLORIDE
     Indication: Product used for unknown indication
     Route: 065
  64. PREDNISONE [Concomitant]
     Active Substance: PREDNISONE
     Indication: Product used for unknown indication
     Route: 065
  65. PREGABALIN [Concomitant]
     Active Substance: PREGABALIN
     Indication: Product used for unknown indication
     Route: 065
  66. PSEUDOEPHEDRINE HYDROCHLORIDE [Concomitant]
     Active Substance: PSEUDOEPHEDRINE HYDROCHLORIDE
     Indication: Product used for unknown indication
     Route: 065
  67. PULMICORT TURBUHALER [Concomitant]
     Active Substance: BUDESONIDE
     Indication: Product used for unknown indication
     Route: 065
  68. REFRESH TEARS [Concomitant]
     Active Substance: CARBOXYMETHYLCELLULOSE SODIUM
     Indication: Product used for unknown indication
     Route: 065
  69. FUROSEMIDE [Concomitant]
     Active Substance: FUROSEMIDE
     Indication: Product used for unknown indication
     Dosage: INTRANASAL
     Route: 065
  70. SIMVASTATIN [Concomitant]
     Active Substance: SIMVASTATIN
     Indication: Product used for unknown indication
     Route: 065
  71. SODIUM BICARBONATE\SODIUM CHLORIDE [Concomitant]
     Active Substance: SODIUM BICARBONATE\SODIUM CHLORIDE
     Indication: Product used for unknown indication
     Route: 065
  72. SODIUM BICARBONATE [Concomitant]
     Active Substance: SODIUM BICARBONATE
     Indication: Product used for unknown indication
     Dosage: OPTHALMIC
     Route: 065
  73. CARBOXYMETHYLCELLULOSE SODIUM [Concomitant]
     Active Substance: CARBOXYMETHYLCELLULOSE SODIUM
     Indication: Product used for unknown indication
     Dosage: OPTHALMIC
     Route: 065
  74. SODIUM CHLORIDE [Concomitant]
     Active Substance: SODIUM CHLORIDE
     Indication: Product used for unknown indication
     Route: 065
  75. MORPHINE SULFATE [Concomitant]
     Active Substance: MORPHINE SULFATE
     Indication: Product used for unknown indication
     Route: 065
  76. SULFADIAZINE\TRIMETHOPRIM [Concomitant]
     Active Substance: SULFADIAZINE\TRIMETHOPRIM
     Indication: Product used for unknown indication
     Route: 065
  77. SULFAMETHOXAZOLE [Concomitant]
     Active Substance: SULFAMETHOXAZOLE
     Indication: Product used for unknown indication
     Route: 065
  78. VALSARTAN [Concomitant]
     Active Substance: VALSARTAN
     Indication: Product used for unknown indication
     Route: 016
  79. VITAMIN D3 [Concomitant]
     Active Substance: CHOLECALCIFEROL
     Indication: Product used for unknown indication
     Route: 065
  80. XANTOFYL PALMITATE [Concomitant]
     Active Substance: XANTOFYL PALMITATE
     Indication: Product used for unknown indication
     Route: 065
  81. ZEAXANTHIN FORTE [Concomitant]
     Indication: Product used for unknown indication
     Route: 065
  82. ZINC OXIDE [Concomitant]
     Active Substance: ZINC OXIDE
     Indication: Product used for unknown indication
     Route: 065
  83. VITAMIN E [Concomitant]
     Active Substance: .ALPHA.-TOCOPHEROL
     Indication: Product used for unknown indication
     Dosage: NOT SPECIFIED
     Route: 065
  84. VITAMIN D [Concomitant]
     Active Substance: VITAMIN D NOS
     Indication: Product used for unknown indication
     Route: 065
  85. ISONIAZID/PYRIDOXINEHYDROCHLORIDE/SULFAMETHOXAZOLE/TRIMETHOPRIM [Concomitant]
     Indication: Product used for unknown indication
     Dosage: ENDOCERVICAL
     Route: 065
  86. GRAMICIDIN\NEOMYCIN SULFATE\POLYMYXIN B SULFATE [Concomitant]
     Active Substance: GRAMICIDIN\NEOMYCIN SULFATE\POLYMYXIN B SULFATE
     Indication: Product used for unknown indication
     Route: 065
  87. BUDESONIDE [Concomitant]
     Active Substance: BUDESONIDE
     Indication: Product used for unknown indication
     Route: 058

REACTIONS (14)
  - Macular degeneration [Not Recovered/Not Resolved]
  - Hospitalisation [Not Recovered/Not Resolved]
  - Chronic sinusitis [Not Recovered/Not Resolved]
  - Dyspepsia [Not Recovered/Not Resolved]
  - Drug ineffective [Not Recovered/Not Resolved]
  - Infusion related reaction [Not Recovered/Not Resolved]
  - Malaise [Not Recovered/Not Resolved]
  - Nausea [Not Recovered/Not Resolved]
  - Pain [Not Recovered/Not Resolved]
  - Paraesthesia oral [Not Recovered/Not Resolved]
  - Procedural pain [Not Recovered/Not Resolved]
  - Pyrexia [Not Recovered/Not Resolved]
  - Therapeutic product effect incomplete [Not Recovered/Not Resolved]
  - Weight decreased [Not Recovered/Not Resolved]
